FAERS Safety Report 11561501 (Version 1)
Quarter: 2015Q3

REPORT INFORMATION
  Report Type: Other
  Country: GB (occurrence: GB)
  Receive Date: 20150928
  Receipt Date: 20150928
  Transmission Date: 20151125
  Serious: Yes (Life-Threatening, Hospitalization)
  Sender: FDA-Public Use
  Company Number: GB-ASTELLAS-2015US034696

PATIENT
  Age: 71 Year

DRUGS (8)
  1. SIMVASTATIN. [Concomitant]
     Active Substance: SIMVASTATIN
     Indication: HYPERTENSION
     Route: 048
     Dates: start: 2006
  2. BETMIGA [Suspect]
     Active Substance: MIRABEGRON
     Route: 048
     Dates: start: 20150201
  3. THYROXINE [Concomitant]
     Active Substance: LEVOTHYROXINE
     Indication: PRODUCT USED FOR UNKNOWN INDICATION
     Dosage: UNK UNK, UNKNOWN FREQ.
     Route: 065
  4. FEXOFENADINE [Concomitant]
     Active Substance: FEXOFENADINE\FEXOFENADINE HYDROCHLORIDE
     Indication: PRURITUS
     Route: 048
     Dates: start: 2009
  5. PIZOTIFEN [Concomitant]
     Active Substance: PIZOTYLINE
     Indication: MIGRAINE
     Dosage: 0.5 MG, UNKNOWN FREQ.
     Route: 048
     Dates: start: 2006
  6. BETMIGA [Suspect]
     Active Substance: MIRABEGRON
     Indication: HYPERTONIC BLADDER
     Route: 048
     Dates: end: 20150201
  7. LETROZOLE. [Concomitant]
     Active Substance: LETROZOLE
     Indication: BREAST CANCER
     Route: 048
     Dates: start: 2014
  8. TRAMADOL. [Concomitant]
     Active Substance: TRAMADOL
     Indication: SPINAL COLUMN STENOSIS
     Route: 048
     Dates: start: 2014

REACTIONS (3)
  - Confusional state [Recovered/Resolved]
  - Posterior reversible encephalopathy syndrome [Recovered/Resolved]
  - Hypertension [Recovered/Resolved]

NARRATIVE: CASE EVENT DATE: 201503
